FAERS Safety Report 4845874-5 (Version None)
Quarter: 2005Q4

REPORT INFORMATION
  Report Type: 
  Country: None (occurrence: None)
  Receive Date: 20051201
  Receipt Date: 20051118
  Transmission Date: 20060501
  Serious: Yes (Other)
  Sender: FDA-Public Use
  Company Number: 2005158563

PATIENT
  Age: 55 Year
  Sex: Female
  Weight: 68.0396 kg

DRUGS (3)
  1. CELEBREX [Suspect]
     Indication: JOINT INJURY
     Dosage: 400 MG (200 MG, 2 IN 1 D), ORAL
     Route: 048
     Dates: start: 20040101
  2. ACETAMINOPHEN [Concomitant]
  3. ASPIRIN [Concomitant]

REACTIONS (3)
  - ARTHROPATHY [None]
  - BONE DISORDER [None]
  - CARTILAGE INJURY [None]
